FAERS Safety Report 11230480 (Version 1)
Quarter: 2015Q2

REPORT INFORMATION
  Report Type: Spontaneous
  Country: US (occurrence: None)
  Receive Date: 20150629
  Receipt Date: 20150629
  Transmission Date: 20150821
  Serious: No
  Sender: FDA-Public Use
  Company Number: None

PATIENT

DRUGS (2)
  1. BISACODYL (BISACODYL) [Suspect]
     Active Substance: BISACODYL
  2. BISOPROLOL FUMARATE (BISOPROLOL) [Suspect]
     Active Substance: BISOPROLOL FUMARATE

REACTIONS (3)
  - Product name confusion [None]
  - Product label confusion [None]
  - Drug dispensing error [None]
